FAERS Safety Report 11627343 (Version 1)
Quarter: 2015Q4

REPORT INFORMATION
  Report Type: Spontaneous
  Country: US (occurrence: US)
  Receive Date: 20151013
  Receipt Date: 20151013
  Transmission Date: 20160304
  Serious: No
  Sender: FDA-Public Use
  Company Number: US-AMGEN-USASP2015076596

PATIENT
  Sex: Female

DRUGS (1)
  1. NEUPOGEN [Suspect]
     Active Substance: FILGRASTIM
     Indication: ASSISTED FERTILISATION
     Dosage: 0.20 ML FROM 300 MCG/ML VIAL, ONCE A DAY
     Route: 065

REACTIONS (4)
  - Arthralgia [Unknown]
  - Off label use [Unknown]
  - Pregnancy [Not Recovered/Not Resolved]
  - Incorrect dose administered [Unknown]
